FAERS Safety Report 5553853-8 (Version None)
Quarter: 2007Q4

REPORT INFORMATION
  Report Type: 
  Country: None (occurrence: None)
  Receive Date: 20071213
  Receipt Date: 20071205
  Transmission Date: 20080405
  Serious: Yes (Other)
  Sender: FDA-Public Use
  Company Number: US-ROCHE-526666

PATIENT
  Age: 16 Year
  Sex: Male
  Weight: 80 kg

DRUGS (5)
  1. ACCUTANE [Suspect]
     Dosage: THE PATIENT WAS DISPENSED 40 MG ACCUTANE ON 11 APRIL 2007 AND 16 MAY 2007
     Route: 048
  2. ACCUTANE [Suspect]
     Route: 048
     Dates: end: 20070614
  3. ACCUTANE [Suspect]
     Route: 048
  4. AMNESTEEM [Suspect]
     Dosage: THE PATIENT WAS DISPENSED 40 MG AMNESTEEM ON 30 DECEMBER 2006 AND 25 JANUARY 2007
     Route: 065
     Dates: start: 20070101
  5. SOTRET [Suspect]
     Dosage: THE PATIENT WAS DISPENSED 40 MG SOTRET ON 05 MARCH 2007
     Route: 065

REACTIONS (1)
  - HAEMATOCHEZIA [None]
